FAERS Safety Report 7705223-1 (Version None)
Quarter: 2011Q3

REPORT INFORMATION
  Report Type: 
  Country: None (occurrence: None)
  Receive Date: 20110822
  Receipt Date: 20110822
  Transmission Date: 20111222
  Serious: No
  Sender: FDA-Public Use
  Company Number: None

PATIENT
  Sex: Male
  Weight: 130.9 kg

DRUGS (2)
  1. RITUXIMAB (MOAB C2B8 ANTI CD20, CHIMERIC)(687451) [Suspect]
     Dosage: 941 MG
  2. PENTOSTATIN 10 MG (DEOXYCOFORMYCIN, DCF) (218321) [Suspect]
     Dosage: 10 G

REACTIONS (1)
  - LYMPHOPENIA [None]
